FAERS Safety Report 5250998-7 (Version None)
Quarter: 2007Q1

REPORT INFORMATION
  Report Type: 
  Country: None (occurrence: None)
  Receive Date: 20070228
  Receipt Date: 20070216
  Transmission Date: 20070707
  Serious: Yes (Hospitalization)
  Sender: FDA-Public Use
  Company Number: GB-SANOFI-SYNTHELABO-A01200701750

PATIENT
  Age: 86 Year
  Sex: Male

DRUGS (5)
  1. ESCITALOPRAM [Concomitant]
     Indication: DEPRESSION
     Route: 048
  2. CO-AMILOFRUSE [Concomitant]
     Indication: DRUG USE FOR UNKNOWN INDICATION
     Route: 048
  3. PROCHLORPERAZINE MALEATE [Concomitant]
     Indication: NAUSEA
     Route: 002
  4. BICALUTAMIDE [Concomitant]
     Indication: PROSTATE CANCER
     Route: 048
  5. PLAVIX [Suspect]
     Indication: DRUG USE FOR UNKNOWN INDICATION
     Route: 048
     Dates: end: 20061113

REACTIONS (4)
  - GASTRIC ULCER [None]
  - HAEMATEMESIS [None]
  - HAEMOGLOBIN DECREASED [None]
  - OESOPHAGITIS [None]
